FAERS Safety Report 10222963 (Version 1)
Quarter: 2014Q2

REPORT INFORMATION
  Report Type: Spontaneous
  Country: ES (occurrence: ES)
  Receive Date: 20140607
  Receipt Date: 20140607
  Transmission Date: 20141212
  Serious: Yes (Hospitalization)
  Sender: FDA-Public Use
  Company Number: PHHY2014ES068720

PATIENT
  Age: 78 Year
  Sex: Male

DRUGS (5)
  1. SALBUTAMOL [Suspect]
     Indication: NASOPHARYNGITIS
  2. OXYGEN THERAPY [Concomitant]
  3. TIOTROPIUM [Concomitant]
     Route: 055
  4. BUDESONIDE [Concomitant]
     Route: 055
  5. SALMETEROL [Concomitant]
     Route: 055

REACTIONS (9)
  - Acute coronary syndrome [Recovered/Resolved]
  - Myocardial necrosis [Recovered/Resolved]
  - Bundle branch block left [Recovered/Resolved]
  - Bundle branch block right [Recovered/Resolved]
  - Chest discomfort [Recovered/Resolved]
  - Sinus tachycardia [Recovered/Resolved]
  - Dyspnoea [Recovered/Resolved]
  - General physical health deterioration [Recovered/Resolved]
  - Electrocardiogram T wave inversion [Recovered/Resolved]
